FAERS Safety Report 7420751-4 (Version None)
Quarter: 2011Q2

REPORT INFORMATION
  Report Type: 
  Country: None (occurrence: None)
  Receive Date: 20110418
  Receipt Date: 20110408
  Transmission Date: 20111010
  Serious: Yes (Other)
  Sender: FDA-Public Use
  Company Number: JP-BRISTOL-MYERS SQUIBB COMPANY-15666134

PATIENT
  Age: 82 Year
  Sex: Female
  Weight: 52 kg

DRUGS (11)
  1. LIPIDIL [Concomitant]
     Dosage: CAPSULE
  2. TAKEPRON [Concomitant]
     Dosage: TABLET
  3. PROMAC [Concomitant]
     Dosage: PROMAC D TABLET
  4. EBRANTIL [Concomitant]
  5. BASEN [Concomitant]
     Dosage: BASEN OD TABLET
  6. UBRETID [Concomitant]
     Dosage: TABLET
  7. MAXIPIME [Suspect]
     Indication: SEPSIS
     Dosage: 1 DF:1G,4VIALS,29JAN11 DOSE INCD 1G;6VIALS/DAY,2G;2/DAY 26JAN11-28JAN11,2G;3/DAY 29JAN11-30JAN11
     Route: 041
     Dates: start: 20110126, end: 20110130
  8. INDOMETHACIN SODIUM [Concomitant]
     Dosage: INFREE CAPSULE
  9. FLUITRAN [Concomitant]
     Dosage: TABLET
  10. PLETAL [Concomitant]
     Dosage: PLETAAL OD TABLET
  11. FASTIC [Concomitant]
     Dosage: TABLET

REACTIONS (3)
  - TREMOR [None]
  - CONVULSION [None]
  - SOMNOLENCE [None]
